FAERS Safety Report 8438717-4 (Version None)
Quarter: 2012Q2

REPORT INFORMATION
  Report Type: 
  Country: None (occurrence: None)
  Receive Date: 20120323
  Receipt Date: 20110811
  Transmission Date: 20120825
  Serious: Yes (Other)
  Sender: FDA-Public Use
  Company Number: 163-21880-11062579

PATIENT
  Age: 83 Year
  Sex: Female
  Weight: 73.0291 kg

DRUGS (10)
  1. TOPROL-XL [Concomitant]
  2. ASPIRIN [Concomitant]
  3. SENOKOT [Concomitant]
  4. LASIX [Concomitant]
  5. LEVOTHYROXINE [Concomitant]
  6. PRILOSEC [Concomitant]
  7. REVLIMID [Suspect]
     Indication: MYELODYSPLASTIC SYNDROME
     Dosage: 10 MG, 1 IN 1 D, PO : 5 MG, DAILY FOR 28 DAYS, PO : 5 MG, M-W-F-, PO
     Route: 048
     Dates: start: 20100501
  8. REVLIMID [Suspect]
     Indication: MYELODYSPLASTIC SYNDROME
     Dosage: 10 MG, 1 IN 1 D, PO : 5 MG, DAILY FOR 28 DAYS, PO : 5 MG, M-W-F-, PO
     Route: 048
     Dates: start: 20110505
  9. REVLIMID [Suspect]
     Indication: MYELODYSPLASTIC SYNDROME
     Dosage: 10 MG, 1 IN 1 D, PO : 5 MG, DAILY FOR 28 DAYS, PO : 5 MG, M-W-F-, PO
     Route: 048
     Dates: start: 20100201
  10. TRAMADOL HCL [Concomitant]

REACTIONS (2)
  - RED BLOOD CELL COUNT DECREASED [None]
  - HAEMOGLOBIN DECREASED [None]
